FAERS Safety Report 20968927 (Version 1)
Quarter: 2022Q2

REPORT INFORMATION
  Report Type: Spontaneous
  Country: IT (occurrence: IT)
  Receive Date: 20220616
  Receipt Date: 20220616
  Transmission Date: 20220720
  Serious: Yes (Other)
  Sender: FDA-Public Use
  Company Number: None

PATIENT
  Age: 29 Year
  Sex: Female
  Weight: 98 kg

DRUGS (5)
  1. DOXORUBICIN [Suspect]
     Active Substance: DOXORUBICIN
     Indication: Rhabdomyosarcoma
     Dosage: STRENGTH 2MG/ML, FREQUENCY TIME 1CYCLICAL, 38MG
     Route: 042
     Dates: start: 20220304
  2. IFOSFAMIDE [Suspect]
     Active Substance: IFOSFAMIDE
     Indication: Rhabdomyosarcoma
     Dosage: PHARMACEUTICAL DOSE FORM ADMIN TEXT :SOLUTION FOR INJECTION, STRENGTH 1GM, 4500MG, FREQUENCY TIME 1C
     Route: 042
     Dates: start: 20220304
  3. GABAPENTIN [Concomitant]
     Active Substance: GABAPENTIN
     Dosage: 200MG, FREQUENCY TIME 1DAYS
  4. OMEPRAZOLE [Concomitant]
     Active Substance: OMEPRAZOLE
     Dosage: 20MG, FREQUENCY TIME 1DAYS
  5. DULOXETINE HYDROCHLORIDE [Concomitant]
     Active Substance: DULOXETINE HYDROCHLORIDE
     Dosage: 30MG, FREQUENCY TIME 1DAYS

REACTIONS (3)
  - Pancytopenia [Recovering/Resolving]
  - Strangury [Recovering/Resolving]
  - Pyrexia [Recovering/Resolving]

NARRATIVE: CASE EVENT DATE: 20220510
